FAERS Safety Report 4664835-2 (Version None)
Quarter: 2005Q2

REPORT INFORMATION
  Report Type: 
  Country: None (occurrence: None)
  Receive Date: 20050517
  Receipt Date: 20050509
  Transmission Date: 20051028
  Serious: Yes (Death, Hospitalization)
  Sender: FDA-Public Use
  Company Number: GBWYE573311APR05

PATIENT
  Age: 83 Year
  Sex: Male

DRUGS (11)
  1. EFFEXOR XR [Suspect]
     Indication: DEPRESSION
     Dosage: SEE IMAGE ORAL
     Route: 048
     Dates: start: 20031101, end: 20031201
  2. EFFEXOR XR [Suspect]
     Indication: HYPERTENSION
     Dosage: SEE IMAGE ORAL
     Route: 048
     Dates: start: 20031101, end: 20031201
  3. EFFEXOR XR [Suspect]
     Indication: DEPRESSION
     Dosage: SEE IMAGE ORAL
     Route: 048
     Dates: start: 20031219
  4. EFFEXOR XR [Suspect]
     Indication: HYPERTENSION
     Dosage: SEE IMAGE ORAL
     Route: 048
     Dates: start: 20031219
  5. ATENOLOL [Suspect]
     Indication: HYPERTENSION
     Dosage: 50 MG 1X PER 1 DAY, ORAL
     Route: 048
     Dates: end: 20040601
  6. ASPIRIN [Concomitant]
  7. BENDROFLUAZIDE (BENDROFLUMETHIAZIDE) [Concomitant]
  8. TIMOLOL MALEATE [Concomitant]
  9. LATANOPROST [Concomitant]
  10. ZOLPIDEM TARTRATE [Concomitant]
  11. SENNA (SENNA) [Concomitant]

REACTIONS (5)
  - CARDIAC FAILURE [None]
  - GENERAL PHYSICAL HEALTH DETERIORATION [None]
  - LOSS OF CONSCIOUSNESS [None]
  - OEDEMA PERIPHERAL [None]
  - TACHYCARDIA [None]
